FAERS Safety Report 19125974 (Version 2)
Quarter: 2021Q2

REPORT INFORMATION
  Report Type: Spontaneous
  Country: US (occurrence: US)
  Receive Date: 20210413
  Receipt Date: 20210518
  Transmission Date: 20210717
  Serious: Yes (Death, Hospitalization, Other)
  Sender: FDA-Public Use
  Company Number: US-SA-2021SA120576

PATIENT
  Age: 57 Year
  Sex: Female

DRUGS (4)
  1. TACROLIMUS. [Suspect]
     Active Substance: TACROLIMUS
     Indication: IMMUNOSUPPRESSANT DRUG THERAPY
     Dosage: UNK
  2. MYCOPHENOLIC ACID. [Suspect]
     Active Substance: MYCOPHENOLIC ACID
     Indication: IMMUNOSUPPRESSANT DRUG THERAPY
  3. PREDNISONE. [Suspect]
     Active Substance: PREDNISONE
     Indication: IMMUNOSUPPRESSANT DRUG THERAPY
     Dosage: UNK
     Route: 065
  4. ALEMTUZUMAB [Suspect]
     Active Substance: ALEMTUZUMAB
     Indication: IMMUNOSUPPRESSANT DRUG THERAPY
     Dosage: UNK

REACTIONS (12)
  - Cytomegalovirus viraemia [Recovered/Resolved]
  - Pneumonia pseudomonal [Fatal]
  - Hypophagia [Recovered/Resolved]
  - Fatigue [Recovered/Resolved]
  - Nephropathy [Recovering/Resolving]
  - Cytomegalovirus infection [Recovering/Resolving]
  - Dyspnoea [Fatal]
  - Bacteroides bacteraemia [Fatal]
  - Intestinal perforation [Fatal]
  - Renal tubular necrosis [Recovering/Resolving]
  - Pneumonitis [Fatal]
  - JC virus infection [Fatal]
